FAERS Safety Report 13857065 (Version 1)
Quarter: 2017Q3

REPORT INFORMATION
  Report Type: Spontaneous
  Country: US (occurrence: US)
  Receive Date: 20170810
  Receipt Date: 20170810
  Transmission Date: 20171127
  Serious: No
  Sender: FDA-Public Use
  Company Number: US-ROCHE-1176103

PATIENT
  Age: 36 Year
  Sex: Female

DRUGS (1)
  1. TAMIFLU [Suspect]
     Active Substance: OSELTAMIVIR PHOSPHATE
     Indication: INFLUENZA
     Route: 065
     Dates: start: 20121230

REACTIONS (7)
  - Presyncope [Unknown]
  - Diarrhoea [Unknown]
  - Vomiting [Unknown]
  - Vertigo [Unknown]
  - Confusional state [Unknown]
  - Hypertension [Unknown]
  - Feeling of body temperature change [Unknown]

NARRATIVE: CASE EVENT DATE: 20121230
